FAERS Safety Report 5853830-3 (Version None)
Quarter: 2008Q3

REPORT INFORMATION
  Report Type: 
  Country: None (occurrence: None)
  Receive Date: 20080822
  Receipt Date: 20080623
  Transmission Date: 20090109
  Serious: Yes (Death, Life-Threatening)
  Sender: FDA-Public Use
  Company Number: NL-ASTRAZENECA-2008AC02213

PATIENT
  Age: 66 Year

DRUGS (11)
  1. SELOKEEN ZOC [Suspect]
     Indication: HYPERTENSION
     Route: 048
  2. AMITRIPTYLINE HCL [Suspect]
     Indication: DEPRESSION
     Route: 048
  3. RIVOTRIL [Suspect]
     Route: 048
  4. TRYPTIZOL [Suspect]
     Indication: DEPRESSION
     Route: 048
  5. SAROTEX [Suspect]
     Indication: DEPRESSION
     Route: 048
  6. TRANSTEC [Suspect]
     Indication: PAIN
     Dosage: 35 PLEISTER 20MG
     Route: 062
  7. NORVASC [Suspect]
     Indication: HYPERTENSION
     Route: 048
  8. DIOVAN [Suspect]
     Indication: HYPERTENSION
     Route: 048
  9. HYDROCHLOROTHIAZIDE [Suspect]
     Indication: HYPERTENSION
     Route: 048
  10. LIORESAL [Suspect]
     Indication: HYPOTONIA
     Route: 048
  11. ZOFRAN [Suspect]
     Dosage: 2MG/ML AMPUL 2ML
     Route: 065

REACTIONS (1)
  - COMA [None]
